FAERS Safety Report 9505406 (Version 1)
Quarter: 2013Q1

REPORT INFORMATION
  Report Type: Spontaneous
  Country: US (occurrence: None)
  Receive Date: 20130220
  Receipt Date: 20130220
  Transmission Date: 20140127
  Serious: No
  Sender: FDA-Public Use
  Company Number: 1000041413

PATIENT
  Age: 42 Year
  Sex: Female

DRUGS (4)
  1. VIIBYRD (VILAZODONE HYDROCHLORIDE) [Suspect]
     Indication: DEPRESSION
     Dosage: 10 MG (10 MG, 1 IN 1 D), ORAL
     Route: 048
     Dates: start: 20121212, end: 20121218
  2. VIIBYRD (VILAZODONE HYDROCHLORIDE) [Suspect]
     Indication: ANXIETY
     Dosage: 10 MG (10 MG, 1 IN 1 D), ORAL
     Route: 048
     Dates: start: 20121212, end: 20121218
  3. VIIBRYD (VILAZODONE HYDROCHLORIDE) [Suspect]
     Indication: DEPRESSION
     Dosage: 40 MG (40 MG, 1 IN 1 D), ORAL
     Route: 048
     Dates: start: 20121226
  4. ATENOLOL (ATENOLOL) (ATENOLOL) [Concomitant]

REACTIONS (8)
  - Influenza like illness [None]
  - Nasopharyngitis [None]
  - Muscle spasms [None]
  - Abnormal dreams [None]
  - Nightmare [None]
  - Panic attack [None]
  - Agitation [None]
  - Drug ineffective for unapproved indication [None]
